FAERS Safety Report 5020891-3 (Version None)
Quarter: 2006Q2

REPORT INFORMATION
  Report Type: 
  Country: None (occurrence: None)
  Receive Date: 20060608
  Receipt Date: 20060529
  Transmission Date: 20061013
  Serious: Yes (Death, Other)
  Sender: FDA-Public Use
  Company Number: PHBS2006NZ08019

PATIENT
  Age: 84 Year
  Sex: Female

DRUGS (21)
  1. ZOLEDRONIC ACID [Suspect]
     Dosage: 4 MG, ONCE/SINGLE
     Route: 065
     Dates: end: 20040701
  2. SEVREDOL [Concomitant]
     Route: 065
  3. METHADONE [Concomitant]
     Route: 065
  4. MEGESTROL [Concomitant]
     Route: 065
  5. PAMIDRONATE DISODIUM [Suspect]
     Dosage: 90 MG, SOME TWENTY DOSES
     Route: 065
     Dates: start: 20000801
  6. FRUSEMIDE [Concomitant]
     Route: 065
  7. FERROGRADUMET [Concomitant]
     Route: 065
  8. NEO-CYTAMEN [Concomitant]
     Route: 065
  9. FOLIC ACID [Concomitant]
     Route: 065
  10. POTASSIUM CHLORIDE [Concomitant]
     Route: 065
  11. HALCION [Concomitant]
     Route: 065
  12. DICLOFENAC POTASSIUM [Concomitant]
     Route: 065
  13. DILTIAZEM [Concomitant]
     Route: 065
  14. BUSCOPAN [Concomitant]
     Route: 065
  15. STEROIDS NOS [Concomitant]
     Route: 065
  16. VENTOLIN [Concomitant]
     Route: 065
  17. IPRATROPIUM BROMIDE [Concomitant]
     Route: 065
  18. PREDNISONE [Concomitant]
     Route: 065
  19. METOCLOPRAMIDE [Concomitant]
     Route: 065
  20. CONTHRAM [Concomitant]
     Route: 065
  21. LAXATIVES [Concomitant]
     Route: 065

REACTIONS (6)
  - BONE DISORDER [None]
  - BONE OPERATION [None]
  - BONE PAIN [None]
  - IMPAIRED HEALING [None]
  - MALIGNANT NEOPLASM PROGRESSION [None]
  - TOOTH EXTRACTION [None]
